FAERS Safety Report 6446878-1 (Version None)
Quarter: 2009Q4

REPORT INFORMATION
  Report Type: 
  Country: None (occurrence: None)
  Receive Date: 20091102
  Receipt Date: 20080829
  Transmission Date: 20100525
  Serious: Yes (Other)
  Sender: FDA-Public Use
  Company Number: AEITA200800198

PATIENT
  Age: 49 Year

DRUGS (3)
  1. IGIV          (IMMUNE GLOBULIN IV (HUMAN), CAPRYLATE/CHROMATOGRAPHY PU [Suspect]
     Indication: IMMUNODEFICIENCY COMMON VARIABLE
     Dosage: IV
     Route: 042
  2. CORTICOSTEROID NOS [Concomitant]
  3. ANTIHISTAMINES [Concomitant]

REACTIONS (2)
  - ANGIOEDEMA [None]
  - HYPOTENSION [None]
